FAERS Safety Report 19102328 (Version 1)
Quarter: 2021Q2

REPORT INFORMATION
  Report Type: Spontaneous
  Country: US (occurrence: US)
  Receive Date: 20210406
  Receipt Date: 20210406
  Transmission Date: 20210717
  Serious: Yes (Disabling)
  Sender: FDA-Public Use
  Company Number: None

PATIENT
  Age: 53 Year
  Sex: Male
  Weight: 67.5 kg

DRUGS (10)
  1. FOLIC ACID. [Concomitant]
     Active Substance: FOLIC ACID
  2. DESCOVY [Concomitant]
     Active Substance: EMTRICITABINE\TENOFOVIR ALAFENAMIDE FUMARATE
  3. TIVICAY [Concomitant]
     Active Substance: DOLUTEGRAVIR SODIUM
  4. PREMIER BLACK 5000 PERFECTZEN [Suspect]
     Active Substance: DIETARY SUPPLEMENT
  5. COREG [Concomitant]
     Active Substance: CARVEDILOL
  6. VITAMIN B12 [Concomitant]
     Active Substance: CYANOCOBALAMIN
  7. LIPITOR [Concomitant]
     Active Substance: ATORVASTATIN CALCIUM
  8. VITAMIN D [Concomitant]
     Active Substance: VITAMIN D NOS
  9. PERFECT BLACK 7000 PREMIERZEN [Suspect]
     Active Substance: DIETARY SUPPLEMENT
     Indication: ERECTILE DYSFUNCTION
     Dates: start: 20170415, end: 20210401
  10. PERFECT PLATINUM 10000 PREMIERZEN [Suspect]
     Active Substance: DIETARY SUPPLEMENT

REACTIONS (2)
  - Illness [None]
  - Myocardial infarction [None]

NARRATIVE: CASE EVENT DATE: 20210401
